FAERS Safety Report 24039553 (Version 3)
Quarter: 2025Q2

REPORT INFORMATION
  Report Type: Spontaneous
  Country: US (occurrence: US)
  Receive Date: 20240702
  Receipt Date: 20250424
  Transmission Date: 20250716
  Serious: No
  Sender: ROCHE
  Company Number: US-ROCHE-3557287

PATIENT
  Sex: Female

DRUGS (1)
  1. COTELLIC [Suspect]
     Active Substance: COBIMETINIB FUMARATE
     Indication: Histiocytosis
     Dosage: 1 TIME A DAY FOR 21 DAYS ON AND THEN 7 DAYS OFF
     Route: 048
     Dates: start: 202311

REACTIONS (6)
  - Peripheral swelling [Unknown]
  - Muscle spasms [Unknown]
  - Diarrhoea [Unknown]
  - Visual impairment [Unknown]
  - Musculoskeletal stiffness [Unknown]
  - Muscle spasms [Unknown]
